FAERS Safety Report 18840725 (Version 1)
Quarter: 2021Q1

REPORT INFORMATION
  Report Type: Spontaneous
  Country: DE (occurrence: DE)
  Receive Date: 20210203
  Receipt Date: 20210203
  Transmission Date: 20210419
  Serious: Yes (Other)
  Sender: FDA-Public Use
  Company Number: DE-009507513-2102DEU000486

PATIENT
  Age: 24 Year
  Sex: Female

DRUGS (1)
  1. IMPLANON NXT [Suspect]
     Active Substance: ETONOGESTREL
     Dosage: 1 ROD (IMPLANT), ON UPPER ARM
     Route: 059
     Dates: start: 201801

REACTIONS (1)
  - Device dislocation [Not Recovered/Not Resolved]
